FAERS Safety Report 15281091 (Version 3)
Quarter: 2019Q1

REPORT INFORMATION
  Report Type: Spontaneous
  Country: US (occurrence: US)
  Receive Date: 20180815
  Receipt Date: 20190131
  Transmission Date: 20190417
  Serious: Yes (Hospitalization, Other)
  Sender: FDA-Public Use
  Company Number: US-ACTELION-A-NJ2018-177323

PATIENT
  Age: 63 Year
  Sex: Female
  Weight: 68.48 kg

DRUGS (16)
  1. ALBUTEROL. [Concomitant]
     Active Substance: ALBUTEROL
  2. OPSUMIT [Suspect]
     Active Substance: MACITENTAN
     Indication: PULMONARY ARTERIAL HYPERTENSION
     Dosage: 10 MG, QD
     Route: 048
     Dates: start: 201410
  3. FUROSEMIDE. [Concomitant]
     Active Substance: FUROSEMIDE
  4. SALMETEROL [Concomitant]
     Active Substance: SALMETEROL
  5. LORATADINE. [Concomitant]
     Active Substance: LORATADINE
  6. OMEPRAZOLE. [Concomitant]
     Active Substance: OMEPRAZOLE
  7. ADCIRCA [Concomitant]
     Active Substance: TADALAFIL
     Dosage: UNK
     Dates: start: 20150528
  8. UPTRAVI [Suspect]
     Active Substance: SELEXIPAG
     Dosage: UNK
     Route: 048
     Dates: start: 20160825
  9. UPTRAVI [Suspect]
     Active Substance: SELEXIPAG
     Indication: PULMONARY ARTERIAL HYPERTENSION
     Dosage: 1400 MCG, BID
     Route: 048
     Dates: start: 20170725
  10. WARFARIN [Concomitant]
     Active Substance: WARFARIN
  11. ALENDRONATE SODIUM. [Concomitant]
     Active Substance: ALENDRONATE SODIUM
  12. METOPROLOL. [Concomitant]
     Active Substance: METOPROLOL
  13. MULTIVITAMIN [Concomitant]
     Active Substance: VITAMINS
  14. FLOVENT [Concomitant]
     Active Substance: FLUTICASONE PROPIONATE
  15. MONTELUKAST [Concomitant]
     Active Substance: MONTELUKAST SODIUM
  16. ZOLPIDEM [Concomitant]
     Active Substance: ZOLPIDEM\ZOLPIDEM TARTRATE

REACTIONS (6)
  - Atrial fibrillation [Recovered/Resolved with Sequelae]
  - Palpitations [Recovering/Resolving]
  - Cardiac pacemaker insertion [Unknown]
  - Cardiac ablation [Unknown]
  - Dyspnoea exertional [Unknown]
  - Cardioversion [Unknown]

NARRATIVE: CASE EVENT DATE: 201712
